FAERS Safety Report 7833269-1 (Version None)
Quarter: 2011Q4

REPORT INFORMATION
  Report Type: 
  Country: None (occurrence: None)
  Receive Date: 20111024
  Receipt Date: 20111018
  Transmission Date: 20120403
  Serious: Yes (Other)
  Sender: FDA-Public Use
  Company Number: US-JNJFOC-20111002594

PATIENT
  Sex: Female
  Weight: 68.04 kg

DRUGS (13)
  1. FENTANYL-100 [Suspect]
     Route: 062
     Dates: start: 20110701
  2. LISINOPRIL [Concomitant]
     Indication: HYPERTENSION
     Dosage: 10/12.5 MG
     Route: 048
     Dates: start: 20080101
  3. AMLODIPINE [Concomitant]
     Indication: HYPERTENSION
     Route: 048
     Dates: start: 20080101
  4. FENTANYL-100 [Suspect]
     Indication: FIBROMYALGIA
     Dosage: NDC#: 0781-7242-55
     Route: 062
     Dates: start: 20100101, end: 20100101
  5. FENTANYL [Suspect]
     Indication: SPINAL COLUMN STENOSIS
     Route: 062
     Dates: start: 20110101, end: 20110701
  6. HYDROCODONE BITARTRATE [Concomitant]
     Indication: FIBROMYALGIA
     Route: 048
     Dates: start: 20000101
  7. PANTOPRAZOLE [Concomitant]
     Indication: GASTRIC DISORDER
     Route: 048
     Dates: start: 20110701
  8. HYDROCHLOROTHIAZIDE [Concomitant]
     Indication: HYPERTENSION
     Route: 048
     Dates: start: 20080101
  9. FENTANYL-100 [Suspect]
     Route: 062
     Dates: start: 20110701
  10. FENTANYL [Suspect]
     Indication: FIBROMYALGIA
     Route: 062
     Dates: start: 20110101, end: 20110701
  11. NEURONTIN [Concomitant]
     Indication: FIBROMYALGIA
     Route: 048
     Dates: start: 20000101
  12. FENTANYL-100 [Suspect]
     Indication: SPINAL COLUMN STENOSIS
     Dosage: NDC#: 0781-7242-55
     Route: 062
     Dates: start: 20100101, end: 20100101
  13. METOPROLOL TARTRATE [Concomitant]
     Indication: CARDIAC DISORDER
     Route: 048
     Dates: start: 20060101

REACTIONS (6)
  - APPLICATION SITE PRURITUS [None]
  - APPLICATION SITE RASH [None]
  - DIABETES MELLITUS [None]
  - PRODUCT QUALITY ISSUE [None]
  - AMNESIA [None]
  - DRUG ADMINISTERED AT INAPPROPRIATE SITE [None]
